FAERS Safety Report 22023480 (Version 1)
Quarter: 2023Q1

REPORT INFORMATION
  Report Type: Report from Study
  Country: US (occurrence: US)
  Receive Date: 20230223
  Receipt Date: 20230223
  Transmission Date: 20230418
  Serious: Yes (Other)
  Sender: FDA-Public Use
  Company Number: US-002147023-NVSC2023US036606

PATIENT
  Sex: Male

DRUGS (1)
  1. FILGRASTIM [Suspect]
     Active Substance: FILGRASTIM
     Indication: Product used for unknown indication
     Dosage: 480 UG, TIW (UG/KG AS DIRECTED)
     Route: 058
     Dates: start: 20220113

REACTIONS (3)
  - Syncope [Unknown]
  - Myalgia [Unknown]
  - Bone pain [Unknown]
